FAERS Safety Report 4492604-5 (Version None)
Quarter: 2004Q4

REPORT INFORMATION
  Report Type: 
  Country: None (occurrence: None)
  Receive Date: 20041103
  Receipt Date: 20041103
  Transmission Date: 20050328
  Serious: Yes (Hospitalization)
  Sender: FDA-Public Use
  Company Number: None

PATIENT
  Age: 73 Year
  Sex: Male
  Weight: 42 kg

DRUGS (13)
  1. WARFARIN SODIUM [Suspect]
     Indication: PROPHYLAXIS
     Dosage: 6 MG QD ORAL
     Route: 048
     Dates: start: 20020911, end: 20040205
  2. TYLENOL [Concomitant]
  3. LORAZEPAM [Concomitant]
  4. NTG SL [Concomitant]
  5. DIGOXIN [Concomitant]
  6. FOSINOPRIL SODIUM [Concomitant]
  7. ALBUTEROL/IPRATROPIUM INHALER [Concomitant]
  8. FUROSEMIDE [Concomitant]
  9. PREDNISONE [Concomitant]
  10. FLUNISOLIDE [Concomitant]
  11. ISOSORBIDE [Concomitant]
  12. OMEPRAZOLE [Concomitant]
  13. SALMETEROL INH [Concomitant]

REACTIONS (7)
  - ASTHENIA [None]
  - CONFUSIONAL STATE [None]
  - DIZZINESS [None]
  - DIZZINESS POSTURAL [None]
  - DYSPNOEA EXERTIONAL [None]
  - FAECAL OCCULT BLOOD POSITIVE [None]
  - MEDICATION ERROR [None]
